FAERS Safety Report 8428890 (Version 7)
Quarter: 2013Q3

REPORT INFORMATION
  Report Type: Spontaneous
  Country: US (occurrence: US)
  Receive Date: 20120227
  Receipt Date: 20130819
  Transmission Date: 20140515
  Serious: Yes (Death, Hospitalization)
  Sender: FDA-Public Use
  Company Number: US-GLAXOSMITHKLINE-A0967217A

PATIENT
  Age: 53 Year
  Sex: Female
  Weight: 91 kg

DRUGS (3)
  1. FLOLAN [Suspect]
     Indication: PULMONARY ARTERIAL HYPERTENSION
     Dosage: 34NGKM SEE DOSAGE TEXT
     Route: 042
     Dates: start: 20011128
  2. TRACLEER [Concomitant]
     Dosage: 125MG TWICE PER DAY
  3. COUMADIN [Concomitant]
     Route: 048

REACTIONS (4)
  - Colon cancer stage IV [Unknown]
  - Nausea [Unknown]
  - Death [Fatal]
  - Hepatic cancer [Unknown]
